FAERS Safety Report 7158729-0 (Version None)
Quarter: 2010Q4

REPORT INFORMATION
  Report Type: 
  Country: None (occurrence: None)
  Receive Date: 20101130
  Receipt Date: 20101119
  Transmission Date: 20110411
  Serious: Yes (Hospitalization)
  Sender: FDA-Public Use
  Company Number: 2010EU006192

PATIENT
  Age: 58 Year
  Sex: Male

DRUGS (3)
  1. MYCAMINE [Suspect]
     Indication: CANDIDIASIS
     Dosage: 100 MG, /D, IV NOS
     Route: 042
  2. CELLCEPT [Concomitant]
  3. CORTICOSTEROIDS [Concomitant]

REACTIONS (1)
  - BRONCHOPULMONARY ASPERGILLOSIS [None]
